FAERS Safety Report 4902940-3 (Version None)
Quarter: 2006Q1

REPORT INFORMATION
  Report Type: 
  Country: None (occurrence: None)
  Receive Date: 20060207
  Receipt Date: 20060131
  Transmission Date: 20060701
  Serious: Yes (Other)
  Sender: FDA-Public Use
  Company Number: PHBS2006JP01767

PATIENT

DRUGS (5)
  1. VITAMIN K [Concomitant]
  2. VITAMIN D3 [Concomitant]
  3. ANTIBIOTICS [Concomitant]
  4. ANALGESICS [Concomitant]
  5. DIOVAN [Suspect]
     Dosage: 40 MG/DAY
     Route: 048

REACTIONS (1)
  - WHITE BLOOD CELL COUNT DECREASED [None]
